FAERS Safety Report 8123631-4 (Version None)
Quarter: 2012Q1

REPORT INFORMATION
  Report Type: 
  Country: None (occurrence: None)
  Receive Date: 20120208
  Receipt Date: 20120202
  Transmission Date: 20120608
  Serious: Yes (Hospitalization)
  Sender: FDA-Public Use
  Company Number: PHEH2011US009874

PATIENT
  Sex: Male
  Weight: 70.82 kg

DRUGS (31)
  1. COLACE [Concomitant]
     Dosage: 250 MG, AT BED TIME
  2. SYNTHROID [Concomitant]
     Dosage: 75 UG, DAILY
  3. ONDANSETRON HCL [Concomitant]
  4. AMLODIPINE [Concomitant]
     Dosage: 10 MG, UNK
  5. SIMVASTATIN [Concomitant]
  6. GUAIFENESIN [Concomitant]
     Dosage: 600 MG,EVERY 12 H
  7. SORBITOL 50PC INJ [Concomitant]
  8. CLONIDINE [Concomitant]
     Dosage: 0.1 MG, BID
  9. EPOGEN [Concomitant]
     Dosage: 10, 000 UNITS EVEY 48 HOURS
  10. WARFARIN SODIUM [Concomitant]
     Dosage: 2 MG, DAILY
     Route: 048
  11. PLAVIX [Concomitant]
     Dosage: 5 MG, DAILY
  12. CLOTRIMAZOLE [Concomitant]
     Dosage: 10 MG, 5 TIMES A DAY
  13. SPIRIVA [Concomitant]
     Dosage: 18 UG, DAILY
  14. PERCOCET [Concomitant]
  15. ASPIRIN [Concomitant]
     Dosage: 81 MG,DAILY
  16. MULTI-VITAMINS [Concomitant]
  17. SENNA [Concomitant]
  18. ACETAMINOPHEN [Concomitant]
  19. DULCOLAX [Concomitant]
  20. ATENOLOL [Concomitant]
     Dosage: 25 MG, BID
     Route: 048
  21. EXJADE [Suspect]
     Indication: NEOPLASM
     Dosage: 1500 MG, DAILY
     Route: 048
     Dates: start: 20100426, end: 20110908
  22. COREG [Concomitant]
     Dosage: 3.125 MG, BID
  23. LEVOFLOXACIN [Concomitant]
     Dosage: 250 MG, DAILY
     Route: 042
  24. PROTONIX [Concomitant]
     Dosage: 40 MG, DAILY
  25. ANADROL [Concomitant]
     Dosage: 25 MG, DAILY
  26. ALLOPURINOL [Concomitant]
     Dosage: 100 MG, DAILY
  27. AVODART [Concomitant]
     Dosage: 0.5 MG,DAILY
  28. FOLIC ACID [Concomitant]
     Dosage: 1 MG, BID
  29. ADVAIR DISKUS 100/50 [Concomitant]
     Dosage: 1 PUFF, BID
  30. IMDUR [Concomitant]
     Dosage: 60 MG, DAILY
  31. MORPHINE [Concomitant]

REACTIONS (26)
  - CARDIAC FAILURE CONGESTIVE [None]
  - CLOSTRIDIUM DIFFICILE COLITIS [None]
  - LUNG INFILTRATION [None]
  - HYPOTHYROIDISM [None]
  - SEPTIC SHOCK [None]
  - ENCEPHALOPATHY [None]
  - AZOTAEMIA [None]
  - CHILLS [None]
  - PYREXIA [None]
  - CORONARY ARTERY DISEASE [None]
  - DYSPNOEA [None]
  - NEOPLASM PROGRESSION [None]
  - HYPOTENSION [None]
  - MALAISE [None]
  - ABDOMINAL DISTENSION [None]
  - ABDOMINAL PAIN [None]
  - POLYURIA [None]
  - ABNORMAL FAECES [None]
  - OLIGURIA [None]
  - MENTAL IMPAIRMENT [None]
  - ILEUS PARALYTIC [None]
  - BRONCHITIS [None]
  - NEOPLASM MALIGNANT [None]
  - RENAL FAILURE ACUTE [None]
  - BACTERIURIA [None]
  - HYPERTENSION [None]
